FAERS Safety Report 8273100 (Version 3)
Quarter: 2012Q4

REPORT INFORMATION
  Report Type: Report from Study
  Country: DE (occurrence: FR)
  Receive Date: 20111202
  Receipt Date: 20121129
  Transmission Date: 20130627
  Serious: Yes (Hospitalization)
  Sender: FDA-Public Use
  Company Number: FR-BIOMARINP-002168

PATIENT
  Age: 16 Year
  Sex: Female
  Weight: 44 kg

DRUGS (3)
  1. KUVAN [Suspect]
     Indication: PRODUCT USED FOR UNKNOWN INDICATION
     Route: 048
     Dates: start: 20100910
  2. LEVOTONINE [Concomitant]
     Indication: SOMNOLENCE
     Route: 048
     Dates: start: 20090910
  3. SINEMET [Concomitant]
     Indication: NEUROTRANSMITTER LEVEL ALTERED
     Route: 048
     Dates: start: 20060413

REACTIONS (2)
  - Haematemesis [Recovered/Resolved]
  - Epistaxis [Recovered/Resolved]
